FAERS Safety Report 10723015 (Version 1)
Quarter: 2015Q1

REPORT INFORMATION
  Report Type: Spontaneous
  Country: CH (occurrence: None)
  Receive Date: 20150114
  Receipt Date: 20150114
  Transmission Date: 20150721
  Serious: Yes (Hospitalization)
  Sender: FDA-Public Use
  Company Number: 2014FE03724

PATIENT
  Age: 66 Year
  Sex: Female

DRUGS (2)
  1. PICOPREP [Suspect]
     Active Substance: CITRIC ACID MONOHYDRATE\MAGNESIUM OXIDE\SODIUM PICOSULFATE
     Indication: COLONOSCOPY
     Dosage: TAKE 1ST DF THE NIGHT BEFORE, THE 2ND DF THE MORNING BEFORE COLONOSCOPY. PATIENT COULD TAKE 2ND D, ORAL
     Route: 048
     Dates: start: 20141216, end: 20141216
  2. DULCOLAX (BISACODYL) [Suspect]
     Active Substance: BISACODYL
     Indication: COLONOSCOPY
     Route: 048
     Dates: start: 20141216, end: 20141216

REACTIONS (9)
  - Hypovolaemia [None]
  - Hyperventilation [None]
  - Hyponatraemia [None]
  - Tremor [None]
  - Vomiting [None]
  - Respiratory alkalosis [None]
  - Nausea [None]
  - Agitation [None]
  - Disorientation [None]

NARRATIVE: CASE EVENT DATE: 20141216
